FAERS Safety Report 23895375 (Version 1)
Quarter: 2024Q2

REPORT INFORMATION
  Report Type: Spontaneous
  Country: US (occurrence: None)
  Receive Date: 20240523
  Receipt Date: 20240523
  Transmission Date: 20240716
  Serious: Yes (Life-Threatening, Hospitalization)
  Sender: FDA-Public Use
  Company Number: None

PATIENT
  Age: 63 Year
  Sex: Female
  Weight: 93 kg

DRUGS (1)
  1. DAPTOMYCIN [Suspect]
     Active Substance: DAPTOMYCIN
     Dosage: OTHER STRENGTH : 500MG/VIL;?FREQUENCY : DAILY;?
     Route: 042
     Dates: start: 20240403, end: 20240409

REACTIONS (6)
  - Acute kidney injury [None]
  - Rhabdomyolysis [None]
  - Dyskinesia [None]
  - Dysarthria [None]
  - Toxicity to various agents [None]
  - Dialysis [None]

NARRATIVE: CASE EVENT DATE: 20240409
